FAERS Safety Report 11829905 (Version 3)
Quarter: 2016Q2

REPORT INFORMATION
  Report Type: Spontaneous
  Country: US (occurrence: US)
  Receive Date: 20151212
  Receipt Date: 20160517
  Transmission Date: 20160815
  Serious: Yes (Other)
  Sender: FDA-Public Use
  Company Number: US-ASTRAZENECA-2013SE94359

PATIENT
  Age: 780 Month
  Sex: Male

DRUGS (28)
  1. FLEXERIL [Concomitant]
     Active Substance: CYCLOBENZAPRINE HYDROCHLORIDE
  2. BYETTA [Suspect]
     Active Substance: EXENATIDE
     Dosage: 10 MCG/0.04 ML
     Route: 065
     Dates: start: 20060103
  3. LASIX [Concomitant]
     Active Substance: FUROSEMIDE
     Dates: start: 20140731
  4. FERROUS SULFATE. [Concomitant]
     Active Substance: FERROUS SULFATE
  5. ZESTRIL [Concomitant]
     Active Substance: LISINOPRIL
  6. INSPRA [Concomitant]
     Active Substance: EPLERENONE
  7. BYETTA [Suspect]
     Active Substance: EXENATIDE
     Dosage: 5 MCG/0.02 ML
     Route: 065
     Dates: start: 20051129
  8. TUMS [Concomitant]
     Active Substance: CALCIUM CARBONATE
  9. VICTOZA [Suspect]
     Active Substance: LIRAGLUTIDE
     Route: 065
     Dates: start: 201101, end: 201112
  10. CYMBALTA [Concomitant]
     Active Substance: DULOXETINE HYDROCHLORIDE
     Dates: start: 20140731
  11. TOPROL XL [Concomitant]
     Active Substance: METOPROLOL SUCCINATE
  12. DIGOXIN. [Concomitant]
     Active Substance: DIGOXIN
  13. BYETTA [Suspect]
     Active Substance: EXENATIDE
     Route: 065
     Dates: start: 200511, end: 200806
  14. LOVAZA [Concomitant]
     Active Substance: OMEGA-3-ACID ETHYL ESTERS
     Dates: start: 20140731
  15. ZOCOR [Concomitant]
     Active Substance: SIMVASTATIN
     Dates: start: 20140731
  16. NORCO [Concomitant]
     Active Substance: ACETAMINOPHEN\HYDROCODONE BITARTRATE
     Dosage: 10-325 MG, EVERY SIX HOURS
     Dates: start: 20140731
  17. PHENERGAN [Concomitant]
     Active Substance: PROMETHAZINE HYDROCHLORIDE
     Dates: start: 20140731
  18. SYNTHROID [Concomitant]
     Active Substance: LEVOTHYROXINE SODIUM
  19. PROTONIX [Concomitant]
     Active Substance: PANTOPRAZOLE SODIUM
  20. BENTYL [Concomitant]
     Active Substance: DICYCLOMINE HYDROCHLORIDE
     Dates: start: 20140731
  21. COREG [Concomitant]
     Active Substance: CARVEDILOL
     Dates: start: 20140731
  22. LYRICA [Concomitant]
     Active Substance: PREGABALIN
     Dates: start: 20140731
  23. JANUVIA [Suspect]
     Active Substance: SITAGLIPTIN PHOSPHATE
     Route: 065
     Dates: start: 200809, end: 201110
  24. ULTRAM [Concomitant]
     Active Substance: TRAMADOL HYDROCHLORIDE
     Dates: start: 20140731
  25. NEXIUM [Concomitant]
     Active Substance: ESOMEPRAZOLE MAGNESIUM
     Route: 048
     Dates: start: 20140731
  26. CORDARONE [Concomitant]
     Active Substance: AMIODARONE HYDROCHLORIDE
  27. METFORMIN [Concomitant]
     Active Substance: METFORMIN HYDROCHLORIDE
  28. ATENOLOL. [Concomitant]
     Active Substance: ATENOLOL

REACTIONS (3)
  - Post procedural hypothyroidism [Unknown]
  - Hyperparathyroidism [Unknown]
  - Papillary thyroid cancer [Unknown]

NARRATIVE: CASE EVENT DATE: 201111
